FAERS Safety Report 18428551 (Version 4)
Quarter: 2020Q4

REPORT INFORMATION
  Report Type: Report from Study
  Country: FI (occurrence: FI)
  Receive Date: 20201026
  Receipt Date: 20201204
  Transmission Date: 20210114
  Serious: Yes (Hospitalization, Other)
  Sender: FDA-Public Use
  Company Number: FI-MYLANLABS-2020M1089400

PATIENT
  Age: 14 Year
  Sex: Male

DRUGS (5)
  1. LEPONEX [Suspect]
     Active Substance: CLOZAPINE
     Indication: SCHIZOPHRENIA
     Dosage: 350 MILLIGRAM, QD
     Route: 065
     Dates: start: 20200401, end: 20200927
  2. LEPONEX [Suspect]
     Active Substance: CLOZAPINE
     Dosage: UNK
     Dates: start: 20201020
  3. PEGORION [Concomitant]
     Active Substance: POLYETHYLENE GLYCOL 4000
     Dosage: 1 DOSE, 1 TO 4 TIMES PER DAY
     Dates: start: 20200406
  4. OLANZAPINE. [Suspect]
     Active Substance: OLANZAPINE
     Indication: PSYCHOTIC SYMPTOM
     Dosage: UNK
  5. ATROVENT [Concomitant]
     Active Substance: IPRATROPIUM BROMIDE
     Dosage: UNK
     Dates: start: 20200429

REACTIONS (10)
  - Abdominal pain [Unknown]
  - Peritonitis [Unknown]
  - Ileus paralytic [Recovered/Resolved]
  - Appendicitis [Recovered/Resolved]
  - Pyrexia [Recovered/Resolved]
  - Abdominal tenderness [Unknown]
  - Off label use [Unknown]
  - Psychotic disorder [Unknown]
  - Abdominal abscess [Recovering/Resolving]
  - C-reactive protein increased [Unknown]

NARRATIVE: CASE EVENT DATE: 2020
